FAERS Safety Report 7323143-1 (Version None)
Quarter: 2011Q1

REPORT INFORMATION
  Report Type: 
  Country: None (occurrence: None)
  Receive Date: 20110301
  Receipt Date: 20110225
  Transmission Date: 20110831
  Serious: Yes (Other)
  Sender: FDA-Public Use
  Company Number: US-PFIZER INC-2005059013

PATIENT
  Sex: Male
  Weight: 70.31 kg

DRUGS (12)
  1. CELEBREX [Suspect]
     Indication: PAIN
  2. CELEBREX [Suspect]
     Indication: JOINT INJURY
     Dosage: 200 MG, 2X/DAY
     Route: 048
     Dates: start: 20021001
  3. CELEBREX [Suspect]
     Indication: OSTEOARTHRITIS
  4. DESLORATADINE [Concomitant]
     Route: 065
  5. BECLOMETASONE DIPROPIONATE [Concomitant]
     Route: 045
  6. LATANOPROST [Concomitant]
     Route: 065
  7. TERAZOSIN HCL [Concomitant]
     Route: 065
  8. INDAPAMIDE [Concomitant]
     Route: 065
  9. LEVOBUNOLOL HYDROCHLORIDE [Concomitant]
     Route: 065
  10. CELEBREX [Suspect]
     Indication: ARTHRITIS
     Dosage: 200 MG, 2X/DAY
     Route: 048
  11. ROSUVASTATIN [Concomitant]
     Route: 065
  12. LANSOPRAZOLE [Concomitant]
     Route: 065

REACTIONS (9)
  - PAIN IN EXTREMITY [None]
  - PAIN [None]
  - CHONDROPATHY [None]
  - RENAL CANCER [None]
  - MUSCLE STRAIN [None]
  - ARTHRITIS [None]
  - ARTHRALGIA [None]
  - JOINT INJURY [None]
  - GROIN PAIN [None]
